FAERS Safety Report 22620259 (Version 2)
Quarter: 2023Q2

REPORT INFORMATION
  Report Type: Spontaneous
  Country: US (occurrence: US)
  Receive Date: 20230620
  Receipt Date: 20230627
  Transmission Date: 20230721
  Serious: Yes (Hospitalization)
  Sender: FDA-Public Use
  Company Number: US-BAYER-2023A084393

PATIENT
  Age: 66 Year
  Sex: Male

DRUGS (2)
  1. KOVALTRY [Suspect]
     Active Substance: ANTIHEMOPHILIC FACTOR, HUMAN RECOMBINANT
     Dosage: NFUSE 2742 UNITS  (+/- 10%) IV OVER 3 TO 5  MINUTES AS NEEDED FOR MINUTES AS NEEDED
     Route: 042
  2. KOVALTRY [Suspect]
     Active Substance: ANTIHEMOPHILIC FACTOR, HUMAN RECOMBINANT
     Dosage: 1 DF, PRIOR TO COLONOSCOPY SCHEDULED PROCEDURE
     Dates: start: 20230613, end: 20230613

REACTIONS (1)
  - Eye operation [None]

NARRATIVE: CASE EVENT DATE: 20230613
